FAERS Safety Report 6818002-4 (Version None)
Quarter: 2010Q3

REPORT INFORMATION
  Report Type: 
  Country: None (occurrence: None)
  Receive Date: 20100706
  Receipt Date: 20100624
  Transmission Date: 20110219
  Serious: Yes (Life-Threatening)
  Sender: FDA-Public Use
  Company Number: GXKR2010RU07089

PATIENT
  Age: 27 Year
  Sex: Female
  Weight: 76 kg

DRUGS (2)
  1. AMOKSIKLAV (NGX) [Suspect]
     Indication: PYELONEPHRITIS CHRONIC
     Dosage: 1200 MG, DAILY
     Route: 042
     Dates: start: 20100612, end: 20100612
  2. SODIUM CHLORIDE [Concomitant]
     Dosage: UNK
     Dates: start: 20100612

REACTIONS (5)
  - BACK PAIN [None]
  - BLOOD PRESSURE DECREASED [None]
  - CHILLS [None]
  - HEART RATE INCREASED [None]
  - HYPERTHERMIA [None]
